FAERS Safety Report 4906039-1 (Version None)
Quarter: 2006Q1

REPORT INFORMATION
  Report Type: 
  Country: None (occurrence: None)
  Receive Date: 20060209
  Receipt Date: 20060204
  Transmission Date: 20060701
  Serious: Yes (Other)
  Sender: FDA-Public Use
  Company Number: PHEH2006US01774

PATIENT
  Sex: Male

DRUGS (2)
  1. LAMISIL [Suspect]
     Indication: NAIL TINEA
     Dosage: UNK, UNK
     Route: 048
     Dates: start: 19960101
  2. LAMISIL [Suspect]
     Dosage: UNK, UNK
     Route: 048

REACTIONS (2)
  - PROSTATIC DISORDER [None]
  - RED BLOOD CELLS SEMEN [None]
